FAERS Safety Report 10099376 (Version 2)
Quarter: 2014Q2

REPORT INFORMATION
  Report Type: Spontaneous
  Country: US (occurrence: US)
  Receive Date: 20140423
  Receipt Date: 20140423
  Transmission Date: 20141212
  Serious: No
  Sender: FDA-Public Use
  Company Number: US-GILEAD-2013-0069108

PATIENT
  Sex: Female

DRUGS (3)
  1. LETAIRIS [Suspect]
     Indication: PULMONARY HYPERTENSION
     Dosage: 10 MG, QD
     Route: 048
     Dates: start: 20121025, end: 20121220
  2. LETAIRIS [Suspect]
     Indication: SCLERODERMA
  3. LETAIRIS [Suspect]
     Indication: CREST SYNDROME

REACTIONS (6)
  - Muscle spasms [Unknown]
  - Migraine [Unknown]
  - Ear pain [Unknown]
  - Peripheral coldness [Unknown]
  - Anaemia [Unknown]
  - Peripheral swelling [Unknown]
